FAERS Safety Report 21638009 (Version 1)
Quarter: 2022Q4

REPORT INFORMATION
  Report Type: Spontaneous
  Country: US (occurrence: US)
  Receive Date: 20221124
  Receipt Date: 20221124
  Transmission Date: 20230112
  Serious: No
  Sender: FDA-Public Use
  Company Number: US-drreddys-SPO/USA/22/0156887

PATIENT
  Age: 14 Year

DRUGS (2)
  1. ZENATANE [Suspect]
     Active Substance: ISOTRETINOIN
     Indication: Acne
     Dosage: RMA ISSUE DATE: 23/JUNE/2022 11:50:38 AM, 22/AUGUST/2022 11:20:30 AM, 27/OCTOBER/2022 05:27:26 PM
  2. ZENATANE [Suspect]
     Active Substance: ISOTRETINOIN
     Dosage: RMA ISSUE DATE: 26/MAY/2022 01:59:33 PM, 27/SEPTEMBER/2022 02:40:50 PM, 27/OCTOBER/2022 05:27:26 PM

REACTIONS (1)
  - Adverse drug reaction [Unknown]
